FAERS Safety Report 20625467 (Version 1)
Quarter: 2022Q1

REPORT INFORMATION
  Report Type: Spontaneous
  Country: NL (occurrence: NL)
  Receive Date: 20220323
  Receipt Date: 20220323
  Transmission Date: 20220424
  Serious: Yes (Other)
  Sender: FDA-Public Use
  Company Number: None

PATIENT
  Age: 72 Year
  Sex: Male
  Weight: 79 kg

DRUGS (8)
  1. EPLERENONE [Suspect]
     Active Substance: EPLERENONE
     Indication: Proteinuria
     Dosage: 12.5 MILLIGRAM DAILY; 1 X PER DAY HALF TABLET,EPLERENON TABLET 25MG / BRAND NAME NOT SPECIFIED
     Route: 065
     Dates: start: 20211011, end: 20220118
  2. ENALAPRIL [Suspect]
     Active Substance: ENALAPRIL
     Indication: Hypertension
     Dosage: 40 MILLIGRAM DAILY; 2 X A DAY 1 PIECE,ENALAPRIL TABLET 20MG / BRAND NAME NOT SPECIFIED
     Route: 065
     Dates: start: 2014, end: 20220117
  3. XATRAL XR [Concomitant]
     Dosage: 10 MG (MILLIGRAM),ALFUZOSIN TABLET MGA 10MG / XATRAL XR TABLET MVA 10MG,THERAPY START DATE:THERAPY E
  4. BROMAZEPAM [Concomitant]
     Active Substance: BROMAZEPAM
     Dosage: 3 MG (MILLIGRAM),BROMAZEPAM TABLET 3MG / BRAND NAME NOT SPECIFIED,THERAPY START DATE :THERAPY END DA
  5. ALLOPURINOL [Concomitant]
     Active Substance: ALLOPURINOL
     Dosage: 100 MG (MILLIGRAM),ALLOPURINOL TABLET 100MG / BRAND NAME NOT SPECIFIED,THERAPY START DATE :THERAPY E
  6. POLYETHYLENE GLYCOLS [Concomitant]
     Active Substance: POLYETHYLENE GLYCOLS
     Dosage: POWDER FOR DRINK,MACROGOL/SALTS PDR V BEVERAGE (MOVIC/MOLAX/LAXT/GEN) / BRAND NAME NOT SPECIFIED,THE
  7. OMEPRAZOLE [Concomitant]
     Active Substance: OMEPRAZOLE
     Dosage: 20 MG (MILLIGRAM),OMEPRAZOL CAPSULE MSR 20MG / ANTACID OMEPRAZOL CF CAPSULE MSR 20MG,THERAPY START D
  8. OCULOTECT [Concomitant]
     Dosage: 50 MG/ML (MILLIGRAM PER MILLILITER),POVIDON EYE DROPS 50MG/ML / OCULOTECT EYE DROPS 50MG/ML VIAL 10M

REACTIONS (5)
  - Anaphylactic shock [Recovered/Resolved]
  - Swollen tongue [Recovered/Resolved]
  - Dysphonia [Recovered/Resolved]
  - Dysphagia [Recovered/Resolved]
  - Pain in jaw [Recovered/Resolved]

NARRATIVE: CASE EVENT DATE: 20220117
